FAERS Safety Report 5257809-4 (Version None)
Quarter: 2007Q1

REPORT INFORMATION
  Report Type: 
  Country: None (occurrence: None)
  Receive Date: 20061117
  Receipt Date: 20060418
  Transmission Date: 20070707
  Serious: Yes (Other)
  Sender: FDA-Public Use
  Company Number: US-JNJFOC-20060401503

PATIENT
  Age: 41 Year
  Sex: Female

DRUGS (1)
  1. LEVAQUIN [Suspect]
     Indication: INFECTION PROPHYLAXIS
     Dates: start: 20060301, end: 20060301

REACTIONS (4)
  - ANXIETY [None]
  - INSOMNIA [None]
  - PANIC ATTACK [None]
  - TREMOR [None]
